FAERS Safety Report 8623880-2 (Version None)
Quarter: 2012Q3

REPORT INFORMATION
  Report Type: 
  Country: None (occurrence: None)
  Receive Date: 20120824
  Receipt Date: 20120824
  Transmission Date: 20120928
  Serious: Yes (Hospitalization)
  Sender: FDA-Public Use
  Company Number: None

PATIENT
  Age: 54 Year
  Sex: Female
  Weight: 171.0061 kg

DRUGS (1)
  1. ZOLPIDEM TARTRATE [Suspect]
     Indication: INSOMNIA
     Dosage: PO QHS PRN
     Dates: start: 20101124, end: 20120524

REACTIONS (4)
  - DRUG INTERACTION [None]
  - CONFUSIONAL STATE [None]
  - AGGRESSION [None]
  - DELIRIUM [None]
